FAERS Safety Report 9901005 (Version 1)
Quarter: 2014Q1

REPORT INFORMATION
  Report Type: Report from Study
  Country: US (occurrence: US)
  Receive Date: 20140217
  Receipt Date: 20140217
  Transmission Date: 20141002
  Serious: No
  Sender: FDA-Public Use
  Company Number: US-ABBVIE-13P-163-1085649-00

PATIENT
  Sex: Male

DRUGS (1)
  1. SIMCOR 1000/20 [Suspect]
     Indication: BLOOD CHOLESTEROL ABNORMAL
     Dosage: 1000/20, 2 TABS AT BEDTIME

REACTIONS (1)
  - Flushing [Recovering/Resolving]
